FAERS Safety Report 9770997 (Version 2)
Quarter: 2014Q1

REPORT INFORMATION
  Report Type: Spontaneous
  Country: US (occurrence: US)
  Receive Date: 20131218
  Receipt Date: 20140226
  Transmission Date: 20141002
  Serious: No
  Sender: FDA-Public Use
  Company Number: US-PFIZER INC-2013358523

PATIENT
  Age: 56 Year
  Sex: Male

DRUGS (2)
  1. INLYTA [Suspect]
     Indication: RENAL CANCER
     Dosage: 3 MG, 2X/DAY
     Route: 048
     Dates: start: 20130509
  2. INLYTA [Suspect]
     Dosage: 4 MG, 2X/DAY
     Dates: start: 20130213

REACTIONS (2)
  - Decreased appetite [Unknown]
  - Fatigue [Unknown]
